FAERS Safety Report 7419014-2 (Version None)
Quarter: 2011Q2

REPORT INFORMATION
  Report Type: 
  Country: None (occurrence: None)
  Receive Date: 20110415
  Receipt Date: 20110412
  Transmission Date: 20111010
  Serious: Yes (Death)
  Sender: FDA-Public Use
  Company Number: US-AMGEN-USASP2010000721

PATIENT
  Age: 70 Year
  Sex: Male

DRUGS (2)
  1. NPLATE [Suspect]
     Indication: IDIOPATHIC THROMBOCYTOPENIC PURPURA
     Dosage: 1 A?G/KG, UNK
     Dates: start: 20100413, end: 20100921
  2. NPLATE [Suspect]

REACTIONS (2)
  - LUNG NEOPLASM MALIGNANT [None]
  - RESPIRATORY FAILURE [None]
